FAERS Safety Report 5222566-4 (Version None)
Quarter: 2007Q1

REPORT INFORMATION
  Report Type: 
  Country: None (occurrence: None)
  Receive Date: 20070129
  Receipt Date: 20070116
  Transmission Date: 20070707
  Serious: Yes (Death, Hospitalization)
  Sender: FDA-Public Use
  Company Number: FR-ELI_LILLY_AND_COMPANY-FR200612002659

PATIENT
  Age: 58 Year
  Sex: Female
  Weight: 72 kg

DRUGS (7)
  1. PROZAC [Suspect]
     Dosage: 20 MG, DAILY (1/D)
     Route: 048
  2. TERALITHE [Concomitant]
     Dosage: 400 MG, 2/D
     Route: 048
     Dates: end: 20060828
  3. DEFANYL [Concomitant]
     Dosage: 1 D/F, DAILY (1/D)
     Route: 048
     Dates: end: 20060828
  4. TROSPIUM CHLORIDE [Concomitant]
     Dosage: 2 D/F, DAILY (1/D)
     Route: 048
     Dates: end: 20060828
  5. ZOPICLONE [Concomitant]
     Dosage: 1 D/F, DAILY (1/D)
     Route: 048
  6. METFORMIN HYDROCHLORIDE [Concomitant]
     Route: 065
  7. CIBACENE [Concomitant]
     Route: 065

REACTIONS (7)
  - FACIAL BONES FRACTURE [None]
  - FALL [None]
  - NOSOCOMIAL INFECTION [None]
  - PULMONARY OEDEMA [None]
  - SEROTONIN SYNDROME [None]
  - VENTRICULAR FIBRILLATION [None]
  - WRIST FRACTURE [None]
